FAERS Safety Report 23210532 (Version 1)
Quarter: 2023Q4

REPORT INFORMATION
  Report Type: Spontaneous
  Country: DK (occurrence: None)
  Receive Date: 20231121
  Receipt Date: 20231121
  Transmission Date: 20240109
  Serious: No
  Sender: FDA-Public Use
  Company Number: DK-ROCHE-3457923

PATIENT
  Age: 46 Year
  Sex: Female

DRUGS (2)
  1. OCREVUS [Suspect]
     Active Substance: OCRELIZUMAB
     Indication: Multiple sclerosis
     Route: 065
  2. TYSABRI [Suspect]
     Active Substance: NATALIZUMAB
     Indication: Product used for unknown indication
     Route: 065

REACTIONS (3)
  - Blood immunoglobulin G decreased [Unknown]
  - Blood immunoglobulin M decreased [Unknown]
  - JC polyomavirus test positive [Unknown]
